FAERS Safety Report 20835182 (Version 4)
Quarter: 2023Q1

REPORT INFORMATION
  Report Type: Spontaneous
  Country: US (occurrence: US)
  Receive Date: 20220516
  Receipt Date: 20230126
  Transmission Date: 20230418
  Serious: No
  Sender: FDA-Public Use
  Company Number: US-SA-SAC20220511001798

PATIENT
  Age: 29 Year
  Sex: Female

DRUGS (12)
  1. DUPIXENT [Suspect]
     Active Substance: DUPILUMAB
     Indication: Dermatitis atopic
     Dosage: 300 MG, QOW
     Route: 058
     Dates: start: 20210707
  2. VIIBRYD [Concomitant]
     Active Substance: VILAZODONE HYDROCHLORIDE
  3. ALBUTEROL [Concomitant]
     Active Substance: ALBUTEROL
  4. HYDROXYZINE HYDROCHLORIDE [Concomitant]
     Active Substance: HYDROXYZINE HYDROCHLORIDE
  5. OMEPRAZOLE [Concomitant]
     Active Substance: OMEPRAZOLE
  6. QVAR REDIHALER [Concomitant]
     Active Substance: BECLOMETHASONE DIPROPIONATE
  7. SINGULAIR [Concomitant]
     Active Substance: MONTELUKAST SODIUM
  8. SPIRIVA [Concomitant]
     Active Substance: TIOTROPIUM BROMIDE MONOHYDRATE
  9. SYMBICORT [Concomitant]
     Active Substance: BUDESONIDE\FORMOTEROL FUMARATE DIHYDRATE
  10. VENTOLIN HFA [Concomitant]
     Active Substance: ALBUTEROL SULFATE
  11. XYZAL [Concomitant]
     Active Substance: LEVOCETIRIZINE DIHYDROCHLORIDE
  12. HYDROXYZINE [Concomitant]
     Active Substance: HYDROXYZINE HYDROCHLORIDE

REACTIONS (7)
  - Asthma [Recovered/Resolved]
  - Impaired quality of life [Unknown]
  - Discomfort [Unknown]
  - Dermatitis atopic [Unknown]
  - Rash [Unknown]
  - Oral herpes [Unknown]
  - Sleep disorder [Unknown]

NARRATIVE: CASE EVENT DATE: 20221025
